FAERS Safety Report 4615938-X (Version None)
Quarter: 2005Q1

REPORT INFORMATION
  Report Type: 
  Country: None (occurrence: None)
  Receive Date: 20050318
  Receipt Date: 20050228
  Transmission Date: 20050727
  Serious: Yes (Hospitalization, Other)
  Sender: FDA-Public Use
  Company Number: ATO-05-0059

PATIENT
  Age: 83 Year
  Sex: Female

DRUGS (2)
  1. TRISENOX [Suspect]
     Indication: ACUTE PROMYELOCYTIC LEUKAEMIA
     Dosage: 0.15 MG/KG, QD (5X/WK)), IVI
     Route: 042
     Dates: start: 20050111, end: 20050118
  2. MEXILETINE HCL [Concomitant]

REACTIONS (2)
  - PANCYTOPENIA [None]
  - VENTRICULAR EXTRASYSTOLES [None]
